FAERS Safety Report 5675435-X (Version None)
Quarter: 2008Q2

REPORT INFORMATION
  Report Type: 
  Country: None (occurrence: None)
  Receive Date: 20080307
  Receipt Date: 20070301
  Transmission Date: 20081010
  Serious: Yes (Hospitalization, Other)
  Sender: FDA-Public Use
  Company Number: US200701006362

PATIENT
  Age: 65 Year
  Sex: Female
  Weight: 112.3 kg

DRUGS (23)
  1. GEMZAR [Suspect]
     Indication: LUNG NEOPLASM MALIGNANT
     Dosage: 900 MG
     Dates: start: 20061017, end: 20070125
  2. DIURETICS [Concomitant]
  3. OXYGEN (OXYGEN) [Concomitant]
  4. GLYBURIDE AND METFORMIN HCL [Concomitant]
  5. ACTOS [Concomitant]
  6. SINGULAIR [Concomitant]
  7. METFORMIN HCL [Concomitant]
  8. ACIPHEX [Concomitant]
  9. ZYRTEC (RABEPRAZOLE SODIUM) [Concomitant]
  10. COUMADIN [Concomitant]
  11. ALLEGRA [Concomitant]
  12. QUININE (QUININE) [Concomitant]
  13. LASIX [Concomitant]
  14. COZAAR [Concomitant]
  15. METOCLOPRAMIDE [Concomitant]
  16. CLONIDINE [Concomitant]
  17. NASACORT AQ (TRIAMCINOLONE ACETONIDE) [Concomitant]
  18. NASALCROM [Concomitant]
  19. ADVAIR DISKUS (FLUTICASONE PROPIONATE, SALMETEROL XINAFOATE) [Concomitant]
  20. VYTORIN [Concomitant]
  21. LANTUS [Concomitant]
  22. NOVOLOG [Concomitant]
  23. MAGNESIUM OXIDE (MAGNESIUM OXIDE) [Concomitant]

REACTIONS (2)
  - INTERSTITIAL LUNG DISEASE [None]
  - RENAL DISORDER [None]
